FAERS Safety Report 25188042 (Version 1)
Quarter: 2025Q2

REPORT INFORMATION
  Report Type: Spontaneous
  Country: RU (occurrence: RU)
  Receive Date: 20250411
  Receipt Date: 20250411
  Transmission Date: 20250716
  Serious: Yes (Other)
  Sender: SANOFI AVENTIS
  Company Number: RU-SA-2025SA100460

PATIENT

DRUGS (2)
  1. ARAVA [Suspect]
     Active Substance: LEFLUNOMIDE
     Dates: start: 2022
  2. ATORVASTATIN [Suspect]
     Active Substance: ATORVASTATIN
     Dates: start: 202412

REACTIONS (5)
  - Drug-induced liver injury [Unknown]
  - Aspartate aminotransferase increased [Unknown]
  - Eosinophil count increased [Unknown]
  - Alanine aminotransferase increased [Unknown]
  - Helminthic infection [Unknown]
